FAERS Safety Report 15749263 (Version 2)
Quarter: 2019Q1

REPORT INFORMATION
  Report Type: Spontaneous
  Country: US (occurrence: US)
  Receive Date: 20181221
  Receipt Date: 20190218
  Transmission Date: 20190417
  Serious: Yes (Hospitalization)
  Sender: FDA-Public Use
  Company Number: US-PFIZER INC-2018522941

PATIENT
  Age: 57 Year
  Sex: Male

DRUGS (2)
  1. LYRICA [Suspect]
     Active Substance: PREGABALIN
     Dosage: UNK, 1X/DAY, (I TAKE IT BEFORE BED TOGETHER (TWO LYRICA CAPSULES)
  2. LYRICA [Suspect]
     Active Substance: PREGABALIN
     Dosage: 300 MG, UNK

REACTIONS (5)
  - Feeling abnormal [Unknown]
  - Depression [Unknown]
  - Musculoskeletal discomfort [Unknown]
  - Pain [Unknown]
  - Product use issue [Unknown]
